FAERS Safety Report 6408480-7 (Version None)
Quarter: 2009Q4

REPORT INFORMATION
  Report Type: 
  Country: None (occurrence: None)
  Receive Date: 20091019
  Receipt Date: 20091006
  Transmission Date: 20100525
  Serious: Yes (Other)
  Sender: FDA-Public Use
  Company Number: CHPA2009US19997

PATIENT
  Age: 84 Year
  Sex: Female

DRUGS (5)
  1. BENEFIBER W/ WHEAT DEXTRIN (NCH)(WHEAT DEXTRIN) POWDER [Suspect]
     Indication: CONSTIPATION
     Dosage: 2 TEASPOONS, BID AS NEEDED, ORAL
     Route: 048
     Dates: end: 20091006
  2. LORAZEPAM [Concomitant]
  3. ASPIRIN [Concomitant]
  4. DRUG THERAPY NOS (DRUG THERAPY NOS) [Concomitant]
  5. ANTIHYPERTENSIVES (NO INGREDIENTS/SUBSTANCES) [Concomitant]

REACTIONS (8)
  - ANHEDONIA [None]
  - APHASIA [None]
  - DECREASED APPETITE [None]
  - DEPRESSION [None]
  - DRUG INEFFECTIVE [None]
  - IMMOBILE [None]
  - MALAISE [None]
  - OFF LABEL USE [None]
